FAERS Safety Report 16109146 (Version 2)
Quarter: 2019Q3

REPORT INFORMATION
  Report Type: Spontaneous
  Country: US (occurrence: US)
  Receive Date: 20190323
  Receipt Date: 20190925
  Transmission Date: 20191004
  Serious: No
  Sender: FDA-Public Use
  Company Number: US-THERAPEUTICSMD-2019TMD00196

PATIENT
  Age: 56 Year
  Sex: Female
  Weight: 58.96 kg

DRUGS (4)
  1. IMVEXXY [Suspect]
     Active Substance: ESTRADIOL
     Indication: VULVOVAGINAL BURNING SENSATION
     Dosage: 4 ?G, 2X/WEEK ON MONDAYS AND THURSDAYS BEFORE BED
     Route: 067
     Dates: start: 201905, end: 2019
  2. APRISO [Concomitant]
     Active Substance: MESALAMINE
  3. IMVEXXY [Suspect]
     Active Substance: ESTRADIOL
     Indication: URINARY TRACT INFECTION
  4. IMVEXXY [Suspect]
     Active Substance: ESTRADIOL
     Indication: BLOOD OESTROGEN DECREASED
     Dosage: 4 ?G, 2X/WEEK ON MONDAYS AND THURSDAYS BEFORE BED
     Route: 067
     Dates: start: 201902, end: 2019

REACTIONS (6)
  - Feeling abnormal [Recovered/Resolved]
  - Off label use [Recovered/Resolved]
  - Breast tenderness [Recovered/Resolved]
  - Headache [Recovered/Resolved]
  - Performance status decreased [Recovered/Resolved]
  - Crying [Recovered/Resolved]

NARRATIVE: CASE EVENT DATE: 201902
